FAERS Safety Report 25664318 (Version 1)
Quarter: 2025Q3

REPORT INFORMATION
  Report Type: Spontaneous
  Country: US (occurrence: US)
  Receive Date: 20250811
  Receipt Date: 20250811
  Transmission Date: 20251020
  Serious: No
  Sender: KYOWA
  Company Number: US-KYOWAKIRIN-2025KK015141

PATIENT

DRUGS (1)
  1. CRYSVITA [Suspect]
     Active Substance: BUROSUMAB-TWZA
     Indication: Hereditary hypophosphataemic rickets
     Dosage: 40 MG, 1X/2 WEEKS
     Route: 058
     Dates: start: 202212

REACTIONS (3)
  - Injection site mass [Recovering/Resolving]
  - Injection site erythema [Recovering/Resolving]
  - Wrong technique in product usage process [Unknown]
